FAERS Safety Report 10971275 (Version 1)
Quarter: 2015Q1

REPORT INFORMATION
  Report Type: Report from Study
  Country: MX (occurrence: MX)
  Receive Date: 20150331
  Receipt Date: 20150331
  Transmission Date: 20150721
  Serious: Yes (Hospitalization, Disabling)
  Sender: FDA-Public Use
  Company Number: MX-BAYER-2015-060519

PATIENT
  Age: 51 Year
  Sex: Male

DRUGS (1)
  1. BETAFERON [Suspect]
     Active Substance: INTERFERON BETA-1B
     Indication: MULTIPLE SCLEROSIS
     Dosage: 8000000 IU, QOD
     Route: 058
     Dates: start: 2010

REACTIONS (3)
  - General physical health deterioration [None]
  - Drug ineffective [None]
  - Cognitive disorder [None]
